FAERS Safety Report 24109723 (Version 8)
Quarter: 2025Q3

REPORT INFORMATION
  Report Type: Spontaneous
  Country: CA (occurrence: CA)
  Receive Date: 20240718
  Receipt Date: 20250924
  Transmission Date: 20251021
  Serious: Yes (Other)
  Sender: PFIZER
  Company Number: CA-PFIZER INC-202400217273

PATIENT
  Age: 61 Year
  Sex: Female

DRUGS (30)
  1. RUXIENCE [Suspect]
     Active Substance: RITUXIMAB-PVVR
     Indication: Rheumatoid arthritis
     Route: 042
     Dates: start: 20210217, end: 20210303
  2. RUXIENCE [Suspect]
     Active Substance: RITUXIMAB-PVVR
     Route: 042
     Dates: start: 20210930, end: 20211015
  3. RUXIENCE [Suspect]
     Active Substance: RITUXIMAB-PVVR
     Route: 042
     Dates: start: 20220928, end: 20221019
  4. RUXIENCE [Suspect]
     Active Substance: RITUXIMAB-PVVR
     Route: 042
     Dates: start: 20230426, end: 20230510
  5. RUXIENCE [Suspect]
     Active Substance: RITUXIMAB-PVVR
     Route: 042
     Dates: start: 20240118, end: 20240201
  6. RUXIENCE [Suspect]
     Active Substance: RITUXIMAB-PVVR
     Route: 042
     Dates: start: 20240801, end: 20240815
  7. RUXIENCE [Suspect]
     Active Substance: RITUXIMAB-PVVR
     Route: 042
     Dates: start: 20240815
  8. RUXIENCE [Suspect]
     Active Substance: RITUXIMAB-PVVR
     Route: 042
     Dates: start: 20250225
  9. RUXIENCE [Suspect]
     Active Substance: RITUXIMAB-PVVR
     Route: 042
     Dates: start: 20250313
  10. ARAVA [Concomitant]
     Active Substance: LEFLUNOMIDE
  11. DULOXETINE HYDROCHLORIDE [Concomitant]
     Active Substance: DULOXETINE HYDROCHLORIDE
     Dosage: 30 MG, 1X/DAY (DIE)
  12. GABAPENTIN [Concomitant]
     Active Substance: GABAPENTIN
     Dosage: 100 MG, DAILY
  13. IMURAN [Concomitant]
     Active Substance: AZATHIOPRINE
  14. IPRATROPIUM [Concomitant]
     Active Substance: IPRATROPIUM
     Route: 055
  15. LANSOPRAZOLE [Concomitant]
     Active Substance: LANSOPRAZOLE
     Dosage: 30 MG, 1X/DAY (DIE)
  16. LEVOTHYROXINE [Concomitant]
     Active Substance: LEVOTHYROXINE
     Dosage: 137 MG, DAILY
  17. LINAGLIPTIN [Concomitant]
     Active Substance: LINAGLIPTIN
  18. METFORMIN [Concomitant]
     Active Substance: METFORMIN HYDROCHLORIDE
     Dosage: 500 MG, 2X/DAY
  19. METHOTREXATE [Concomitant]
     Active Substance: METHOTREXATE
  20. OMEPRAZOLE [Concomitant]
     Active Substance: OMEPRAZOLE
  21. PLAQUENIL [Concomitant]
     Active Substance: HYDROXYCHLOROQUINE SULFATE
  22. ROSUVASTATIN [Concomitant]
     Active Substance: ROSUVASTATIN
  23. ALBUTEROL [Concomitant]
     Active Substance: ALBUTEROL
     Route: 055
  24. SULFASALAZINE [Concomitant]
     Active Substance: SULFASALAZINE
     Dosage: 500 MG, 4X/DAY (2 TABLETS AM AND 2 TABLETS PM)
     Route: 048
     Dates: start: 20240423
  25. SULFASALAZINE [Concomitant]
     Active Substance: SULFASALAZINE
     Dosage: 1000 MG, 2X/DAY (2 TABLETS IN MORNING, AND 2 TABLETS AT NIGHT)
  26. SYNTHROID [Concomitant]
     Active Substance: LEVOTHYROXINE SODIUM
     Dosage: 137 MG, 1X/DAY
  27. SYNTHROID [Concomitant]
     Active Substance: LEVOTHYROXINE SODIUM
     Dosage: 137 UG, 1X/DAY (DIE)
  28. TWYNSTA [Concomitant]
     Active Substance: AMLODIPINE BESYLATE\TELMISARTAN
     Dosage: 45 MG, 1X/DAY (40-5MG DIE )
  29. TELMISARTAN [Concomitant]
     Active Substance: TELMISARTAN
     Dosage: 40 MG, DAILY
  30. TELMISARTAN AND AMLODIPINE [Concomitant]
     Active Substance: AMLODIPINE BESYLATE\TELMISARTAN
     Dosage: 45 MG, DAILY (PRE TABLET 1 DAILY)

REACTIONS (24)
  - Pulmonary hypertension [Unknown]
  - Cough [Unknown]
  - Dyspnoea [Unknown]
  - Oxygen saturation decreased [Unknown]
  - Anxiety [Unknown]
  - Depression [Unknown]
  - Sinus tachycardia [Unknown]
  - Obesity [Unknown]
  - Osteoarthritis [Unknown]
  - Blood pressure diastolic increased [Unknown]
  - Heart rate increased [Recovered/Resolved]
  - Aspartate aminotransferase increased [Unknown]
  - Blood creatinine decreased [Not Recovered/Not Resolved]
  - C-reactive protein increased [Not Recovered/Not Resolved]
  - Haemoglobin decreased [Not Recovered/Not Resolved]
  - Mean cell volume decreased [Unknown]
  - Red blood cell sedimentation rate increased [Not Recovered/Not Resolved]
  - Monocyte count increased [Unknown]
  - White blood cell count increased [Recovered/Resolved]
  - Neutrophil count increased [Recovered/Resolved]
  - Dyspnoea exertional [Unknown]
  - Sinus pain [Unknown]
  - Nasopharyngitis [Not Recovered/Not Resolved]
  - Hypertension [Unknown]

NARRATIVE: CASE EVENT DATE: 20230517
